FAERS Safety Report 5534253-3 (Version None)
Quarter: 2007Q4

REPORT INFORMATION
  Report Type: 
  Country: None (occurrence: None)
  Receive Date: 20071205
  Receipt Date: 20071129
  Transmission Date: 20080405
  Serious: Yes (Hospitalization)
  Sender: FDA-Public Use
  Company Number: US-AVENTIS-200720979GDDC

PATIENT
  Age: 26 Year
  Sex: Female

DRUGS (5)
  1. RIFAMPICIN [Suspect]
  2. ISONIAZID [Concomitant]
  3. PYRAZINAMIDE [Concomitant]
  4. ETAMBUTOL [Concomitant]
  5. VITAMIN B6 [Concomitant]

REACTIONS (9)
  - ABDOMINAL PAIN [None]
  - ASTHENIA [None]
  - JAUNDICE [None]
  - LIVER FUNCTION TEST ABNORMAL [None]
  - LIVER INJURY [None]
  - NAUSEA [None]
  - PANCREATIC INJURY [None]
  - VOMITING [None]
  - WEIGHT DECREASED [None]
